FAERS Safety Report 20236270 (Version 1)
Quarter: 2021Q4

REPORT INFORMATION
  Report Type: Other
  Country: GB (occurrence: GB)
  Receive Date: 20211228
  Receipt Date: 20211228
  Transmission Date: 20220304
  Serious: Yes (Other)
  Sender: FDA-Public Use
  Company Number: None

PATIENT
  Age: 30 Year
  Sex: Male
  Weight: 47 kg

DRUGS (2)
  1. SERTRALINE [Suspect]
     Active Substance: SERTRALINE HYDROCHLORIDE
     Indication: Depression suicidal
     Dosage: 50 MILLIGRAM, QD
     Route: 048
     Dates: start: 20210708
  2. SERTRALINE [Suspect]
     Active Substance: SERTRALINE HYDROCHLORIDE
     Dosage: UNK DOSE INCREASED
     Route: 048

REACTIONS (9)
  - Suicidal ideation [Recovered/Resolved with Sequelae]
  - Hallucination [Not Recovered/Not Resolved]
  - Mania [Not Recovered/Not Resolved]
  - Delusion [Not Recovered/Not Resolved]
  - Paranoia [Not Recovered/Not Resolved]
  - Anxiety [Not Recovered/Not Resolved]
  - Mood swings [Not Recovered/Not Resolved]
  - Agoraphobia [Not Recovered/Not Resolved]
  - Agitation [Not Recovered/Not Resolved]

NARRATIVE: CASE EVENT DATE: 20210715
